FAERS Safety Report 8076082-5 (Version None)
Quarter: 2012Q1

REPORT INFORMATION
  Report Type: 
  Country: None (occurrence: None)
  Receive Date: 20120127
  Receipt Date: 20110805
  Transmission Date: 20120608
  Serious: No
  Sender: FDA-Public Use
  Company Number: US-GLAXOSMITHKLINE-A0939822A

PATIENT

DRUGS (1)
  1. WELLBUTRIN [Suspect]
     Indication: EX-TOBACCO USER
     Route: 065

REACTIONS (3)
  - APHONIA [None]
  - DYSPHONIA [None]
  - DRY MOUTH [None]
